FAERS Safety Report 7556659-3 (Version None)
Quarter: 2011Q2

REPORT INFORMATION
  Report Type: 
  Country: None (occurrence: None)
  Receive Date: 20110620
  Receipt Date: 20110613
  Transmission Date: 20111010
  Serious: Yes (Hospitalization)
  Sender: FDA-Public Use
  Company Number: MX-BRISTOL-MYERS SQUIBB COMPANY-15207392

PATIENT
  Age: 73 Year
  Sex: Female

DRUGS (5)
  1. PLACEBO [Suspect]
     Indication: THROMBOSIS PROPHYLAXIS
     Dosage: DRUG INTERRUPTED ON  25JUN2010.RESTARTED ON 05JUL2010
     Route: 048
     Dates: start: 20090527
  2. WARFARIN SODIUM [Suspect]
     Indication: THROMBOSIS PROPHYLAXIS
     Dosage: DRUG INTERRUPTED ON 25JUN2010.RESTARTED ON 05JUL2010
     Route: 048
     Dates: start: 20090527
  3. AMIODARONE HCL [Concomitant]
     Dates: start: 20080101
  4. HYDROCHLOROTHIAZIDE [Concomitant]
     Dates: start: 20100430
  5. PIOGLITAZONE HCL [Concomitant]
     Dates: start: 20100430

REACTIONS (2)
  - URINARY TRACT INFECTION [None]
  - GASTRITIS [None]
